FAERS Safety Report 11172853 (Version 2)
Quarter: 2015Q2

REPORT INFORMATION
  Report Type: Spontaneous
  Country: IT (occurrence: IT)
  Receive Date: 20150608
  Receipt Date: 20150617
  Transmission Date: 20150821
  Serious: Yes (Death, Hospitalization)
  Sender: FDA-Public Use
  Company Number: PHHY2015IT065789

PATIENT
  Age: 75 Year
  Sex: Female

DRUGS (9)
  1. AVASTIN [Suspect]
     Active Substance: BEVACIZUMAB
     Indication: ADENOCARCINOMA
     Dosage: 488 MG, UNK
     Route: 042
     Dates: start: 20150421, end: 20150512
  2. MAGNESIO SOLFATO [Concomitant]
     Indication: PRODUCT USED FOR UNKNOWN INDICATION
     Dosage: 1000 MG, UNK
     Route: 042
  3. CAPECITABINE ACCORD [Suspect]
     Active Substance: CAPECITABINE
     Indication: ADENOCARCINOMA
     Dosage: 3000 MG, UNK
     Route: 048
     Dates: start: 20150421, end: 20150512
  4. OXALIPLATIN SANDOZ [Suspect]
     Active Substance: OXALIPLATIN
     Indication: ADENOCARCINOMA
     Dosage: 213 MG, UNK
     Route: 042
     Dates: start: 20150421, end: 20150512
  5. BLOPRESS [Concomitant]
     Active Substance: CANDESARTAN CILEXETIL
     Indication: PRODUCT USED FOR UNKNOWN INDICATION
     Dosage: 1 DF, UNK
     Route: 048
     Dates: start: 2010
  6. DESAMETASONE [Concomitant]
     Active Substance: DEXAMETHASONE
     Indication: PRODUCT USED FOR UNKNOWN INDICATION
     Dosage: 8 MG, UNK
     Route: 042
     Dates: start: 20150421, end: 20150512
  7. CRESTOR [Concomitant]
     Active Substance: ROSUVASTATIN CALCIUM
     Indication: PRODUCT USED FOR UNKNOWN INDICATION
     Dosage: 10 MG, UNK
     Route: 048
     Dates: start: 2010
  8. GLUTATIONE [Concomitant]
     Indication: PRODUCT USED FOR UNKNOWN INDICATION
     Dosage: 2400 MG, UNK
     Route: 042
     Dates: start: 20150421, end: 20150512
  9. ALOXI [Concomitant]
     Active Substance: PALONOSETRON HYDROCHLORIDE
     Indication: PRODUCT USED FOR UNKNOWN INDICATION
     Dosage: 250 UG, UNK
     Route: 042
     Dates: start: 20150421, end: 20150512

REACTIONS (5)
  - Intestinal perforation [Unknown]
  - Abdominal pain [Unknown]
  - Renal failure [Unknown]
  - Peritonitis [Unknown]
  - Septic shock [Fatal]

NARRATIVE: CASE EVENT DATE: 20150518
